FAERS Safety Report 5656054-8 (Version None)
Quarter: 2008Q1

REPORT INFORMATION
  Report Type: 
  Country: None (occurrence: None)
  Receive Date: 20080307
  Receipt Date: 20080225
  Transmission Date: 20080703
  Serious: Yes (Other)
  Sender: FDA-Public Use
  Company Number: US-PFIZER INC-2008019279

PATIENT
  Age: 51 Year
  Sex: Male

DRUGS (5)
  1. CHANTIX [Suspect]
     Indication: SMOKING CESSATION THERAPY
  2. ALBUTEROL [Concomitant]
     Route: 055
  3. ATENOLOL [Concomitant]
     Route: 048
  4. LIPITOR [Concomitant]
     Indication: CORONARY ARTERY DISEASE
     Route: 048
  5. ASPIRIN [Concomitant]
     Indication: CORONARY ARTERY DISEASE
     Route: 048

REACTIONS (2)
  - HEADACHE [None]
  - LABILE HYPERTENSION [None]
